FAERS Safety Report 10417700 (Version 4)
Quarter: 2015Q2

REPORT INFORMATION
  Report Type: Spontaneous
  Country: US (occurrence: US)
  Receive Date: 20140829
  Receipt Date: 20150525
  Transmission Date: 20150821
  Serious: Yes (Other)
  Sender: FDA-Public Use
  Company Number: US-JNJFOC-20140820471

PATIENT
  Age: 62 Year
  Sex: Female
  Weight: 105.24 kg

DRUGS (4)
  1. TOPAMAX [Suspect]
     Active Substance: TOPIRAMATE
     Indication: BIPOLAR DISORDER
     Route: 048
  2. FARXIGA [Concomitant]
     Active Substance: DAPAGLIFLOZIN PROPANEDIOL
     Indication: TYPE 2 DIABETES MELLITUS
     Route: 065
     Dates: start: 20140808
  3. GLUCOPHAGE [Interacting]
     Active Substance: METFORMIN HYDROCHLORIDE
     Indication: TYPE 2 DIABETES MELLITUS
     Route: 048
     Dates: end: 201408
  4. VICTOZA [Concomitant]
     Active Substance: LIRAGLUTIDE
     Indication: TYPE 2 DIABETES MELLITUS
     Route: 048

REACTIONS (32)
  - Gastric disorder [Unknown]
  - Sinusitis [Unknown]
  - Stomatitis [Unknown]
  - Asthenia [Unknown]
  - Malaise [Unknown]
  - Tooth disorder [Unknown]
  - Drug interaction [Unknown]
  - Depression [Unknown]
  - Mental disorder [Unknown]
  - Weight decreased [Unknown]
  - Alopecia [Unknown]
  - Dyspnoea [Unknown]
  - Blister [Unknown]
  - Weight increased [Unknown]
  - Insulin resistance [Unknown]
  - Pruritus [Unknown]
  - Skin lesion [Unknown]
  - Gastritis [Unknown]
  - Polyp [Recovered/Resolved]
  - Dizziness [Unknown]
  - Oral herpes [Unknown]
  - Dizziness [Unknown]
  - Poor quality sleep [Unknown]
  - Product use issue [Unknown]
  - Feeling abnormal [Unknown]
  - Diarrhoea [Unknown]
  - Increased tendency to bruise [Unknown]
  - Dysuria [Unknown]
  - Diabetes mellitus inadequate control [Unknown]
  - Barrett^s oesophagus [Unknown]
  - Hypersomnia [Unknown]
  - Cluster headache [Unknown]

NARRATIVE: CASE EVENT DATE: 2013
